FAERS Safety Report 6497279-1 (Version None)
Quarter: 2009Q4

REPORT INFORMATION
  Report Type: 
  Country: None (occurrence: None)
  Receive Date: 20091215
  Receipt Date: 20090807
  Transmission Date: 20100525
  Serious: No
  Sender: FDA-Public Use
  Company Number: A0801118A

PATIENT
  Age: 65 Year
  Sex: Male

DRUGS (3)
  1. AVODART [Suspect]
     Indication: BENIGN PROSTATIC HYPERPLASIA
     Dosage: .5MG PER DAY
     Route: 048
     Dates: start: 20090701, end: 20090806
  2. FLOMAX [Concomitant]
  3. NAPROXIN [Concomitant]

REACTIONS (3)
  - TESTICULAR DISORDER [None]
  - TESTICULAR PAIN [None]
  - TESTICULAR SWELLING [None]
